FAERS Safety Report 6920992-6 (Version None)
Quarter: 2010Q3

REPORT INFORMATION
  Report Type: 
  Country: None (occurrence: None)
  Receive Date: 20100812
  Receipt Date: 20100809
  Transmission Date: 20110219
  Serious: Yes (Hospitalization, Disabling)
  Sender: FDA-Public Use
  Company Number: BR-ROCHE-627239

PATIENT
  Sex: Female
  Weight: 43 kg

DRUGS (6)
  1. RIVOTRIL [Suspect]
     Indication: FIBROMYALGIA
     Route: 048
     Dates: start: 20040101, end: 20060101
  2. RIVOTRIL [Suspect]
     Route: 048
     Dates: end: 20090101
  3. RIVOTRIL [Suspect]
     Route: 048
     Dates: start: 20090401, end: 20090618
  4. RIVOTRIL [Suspect]
     Route: 048
     Dates: start: 20090622
  5. OSTRIOL [Concomitant]
     Indication: PARATHYROID DISORDER
  6. COLECALCIFEROL [Concomitant]
     Dosage: DOSE: 25000 UI, 2 CAPS/WEEK DURING 1 MONTH, FREQUENCY: EVERY 2 MONTHS
     Route: 048

REACTIONS (4)
  - DRUG INEFFECTIVE [None]
  - INSOMNIA [None]
  - OSTEITIS DEFORMANS [None]
  - WITHDRAWAL SYNDROME [None]
